FAERS Safety Report 12691376 (Version 2)
Quarter: 2016Q3

REPORT INFORMATION
  Report Type: Report from Study
  Country: JP (occurrence: JP)
  Receive Date: 20160826
  Receipt Date: 20160829
  Transmission Date: 20161109
  Serious: Yes (Hospitalization)
  Sender: FDA-Public Use
  Company Number: JP-B.I. PHARMACEUTICALS,INC./RIDGEFIELD-2016-BI-43638II

PATIENT
  Age: 61 Year
  Sex: Female
  Weight: 52.9 kg

DRUGS (4)
  1. BIBF 1120 [Suspect]
     Active Substance: NINTEDANIB
     Indication: COLORECTAL CANCER
     Dosage: 400 MG
     Route: 065
     Dates: start: 20160623, end: 20160630
  2. BIBF 1120 [Suspect]
     Active Substance: NINTEDANIB
     Dosage: 300 MG
     Route: 065
     Dates: start: 20160707, end: 20160817
  3. LONSURF [Suspect]
     Active Substance: TIPIRACIL HYDROCHLORIDE\TRIFLURIDINE
     Indication: COLORECTAL CANCER
     Dosage: 100 MG
     Route: 065
     Dates: start: 20160623, end: 20160630
  4. LOXOPROFEN [Concomitant]
     Active Substance: LOXOPROFEN
     Indication: PAIN
     Dosage: 60MG PRN
     Route: 048
     Dates: start: 20160629

REACTIONS (6)
  - Aspartate aminotransferase increased [Recovered/Resolved]
  - Hypertension [Not Recovered/Not Resolved]
  - Alanine aminotransferase increased [Not Recovered/Not Resolved]
  - Anaemia [Not Recovered/Not Resolved]
  - Diarrhoea [Not Recovered/Not Resolved]
  - Abdominal pain [Not Recovered/Not Resolved]

NARRATIVE: CASE EVENT DATE: 20160630
